FAERS Safety Report 20189957 (Version 7)
Quarter: 2022Q1

REPORT INFORMATION
  Report Type: Report from Study
  Country: US (occurrence: US)
  Receive Date: 20211215
  Receipt Date: 20220224
  Transmission Date: 20220423
  Serious: Yes (Hospitalization, Other)
  Sender: FDA-Public Use
  Company Number: US-GILEAD-2021-0561624

PATIENT
  Age: 81 Year
  Sex: Female
  Weight: 61.5 kg

DRUGS (3)
  1. AMBRISENTAN [Suspect]
     Active Substance: AMBRISENTAN
     Indication: Pulmonary hypertension
     Dosage: 10 MG, QD
     Route: 048
     Dates: start: 20171207
  2. ADCIRCA [Concomitant]
     Active Substance: TADALAFIL
  3. ESBRIET [Concomitant]
     Active Substance: PIRFENIDONE

REACTIONS (9)
  - Cardiac failure congestive [Unknown]
  - Pericardial effusion [Unknown]
  - Cardiac failure [Recovered/Resolved]
  - Pneumonia [Recovered/Resolved]
  - Pleural effusion [Recovered/Resolved]
  - Asthenia [Unknown]
  - Oxygen saturation decreased [Unknown]
  - Peripheral swelling [Unknown]
  - Cough [Unknown]

NARRATIVE: CASE EVENT DATE: 20220108
